FAERS Safety Report 23399289 (Version 1)
Quarter: 2024Q1

REPORT INFORMATION
  Report Type: Spontaneous
  Country: US (occurrence: US)
  Receive Date: 20240113
  Receipt Date: 20240113
  Transmission Date: 20240409
  Serious: No
  Sender: FDA-Public Use
  Company Number: US-AMGEN-USASP2024006980

PATIENT
  Sex: Female

DRUGS (1)
  1. REPATHA [Suspect]
     Active Substance: EVOLOCUMAB
     Indication: Product used for unknown indication
     Dosage: UNK,4 INJECTIONS ON AN EVERY 2 WEEK DOSING CYCLE
     Route: 065

REACTIONS (2)
  - Injection site rash [Unknown]
  - Injection site pruritus [Unknown]
